FAERS Safety Report 11074004 (Version 4)
Quarter: 2016Q1

REPORT INFORMATION
  Report Type: Spontaneous
  Country: US (occurrence: US)
  Receive Date: 20150429
  Receipt Date: 20160216
  Transmission Date: 20160525
  Serious: Yes (Other)
  Sender: FDA-Public Use
  Company Number: US-PFIZER INC-2015138838

PATIENT
  Sex: Male

DRUGS (2)
  1. LYRICA [Suspect]
     Active Substance: PREGABALIN
     Indication: SEIZURE
     Dosage: 225 MG, 2X/DAY
     Route: 048
     Dates: end: 201505
  2. LYRICA [Suspect]
     Active Substance: PREGABALIN
     Indication: NEUROPATHY PERIPHERAL

REACTIONS (8)
  - Seizure [Unknown]
  - Cellulitis [Not Recovered/Not Resolved]
  - Neuropathy peripheral [Unknown]
  - Tongue biting [Unknown]
  - Pneumonia [Recovered/Resolved]
  - Condition aggravated [Unknown]
  - Lip injury [Unknown]
  - Peripheral swelling [Unknown]

NARRATIVE: CASE EVENT DATE: 20150513
